FAERS Safety Report 9471360 (Version 2)
Quarter: 2013Q4

REPORT INFORMATION
  Report Type: Spontaneous
  Country: JP (occurrence: JP)
  Receive Date: 20130822
  Receipt Date: 20131008
  Transmission Date: 20140711
  Serious: Yes (Life-Threatening)
  Sender: FDA-Public Use
  Company Number: JP-TEVA-426847ISR

PATIENT
  Age: 76 Year
  Sex: Female
  Weight: 59.5 kg

DRUGS (8)
  1. PERAPRIN,INJ,0.5%2ML1AMPOULE [Suspect]
     Indication: ANAESTHETIC PREMEDICATION
     Dosage: 10 MILLIGRAM DAILY;
     Route: 042
     Dates: start: 20130814
  2. HARTMANN^S SOLUTION [Suspect]
     Dosage: 500 ML DAILY;
     Route: 042
     Dates: start: 20130814
  3. CARBOCAIN [Suspect]
  4. ANTIHYPERTENSIVES [Concomitant]
  5. MECOBALAMIN TABLETS,500 MICROGRAM [Concomitant]
     Dosage: 500 MICROGRAM
  6. AMLODIPINE OD TAB, 2.5MG [Concomitant]
  7. TIMOPTOL XE OPHTHALMIC SOLUTION 0.5% [Concomitant]
  8. KARY UNI OPHTHALMIC SUSPENSION 0.005% [Concomitant]

REACTIONS (2)
  - Cardiac arrest [Recovered/Resolved]
  - Bradycardia [Recovering/Resolving]
